FAERS Safety Report 20823840 (Version 1)
Quarter: 2022Q2

REPORT INFORMATION
  Report Type: Spontaneous
  Country: US (occurrence: None)
  Receive Date: 20220512
  Receipt Date: 20220512
  Transmission Date: 20220721
  Serious: Yes (Hospitalization)
  Sender: FDA-Public Use
  Company Number: None

PATIENT
  Age: 25 Year
  Sex: Female
  Weight: 72 kg

DRUGS (1)
  1. RHOGAM [Suspect]
     Active Substance: HUMAN RHO(D) IMMUNE GLOBULIN

REACTIONS (4)
  - Influenza like illness [None]
  - Foetal hypokinesia [None]
  - Maternal drugs affecting foetus [None]
  - Maternal exposure timing unspecified [None]

NARRATIVE: CASE EVENT DATE: 20220511
